FAERS Safety Report 6090017-6 (Version None)
Quarter: 2009Q1

REPORT INFORMATION
  Report Type: 
  Country: None (occurrence: None)
  Receive Date: 20090224
  Receipt Date: 20081126
  Transmission Date: 20090719
  Serious: No
  Sender: FDA-Public Use
  Company Number: US-ABBOTT-08P-163-0490196-00

PATIENT
  Sex: Female

DRUGS (3)
  1. SIMCOR [Suspect]
     Indication: BLOOD CHOLESTEROL INCREASED
     Dosage: 500/20 MG
     Route: 048
     Dates: start: 20081101
  2. SIMCOR [Suspect]
     Indication: DIABETES MELLITUS
  3. UNNAMED DIABETES MEDICATION [Concomitant]
     Indication: DIABETES MELLITUS

REACTIONS (4)
  - ASTHENIA [None]
  - BACK PAIN [None]
  - FLUSHING [None]
  - HEADACHE [None]
